FAERS Safety Report 10991174 (Version 1)
Quarter: 2015Q2

REPORT INFORMATION
  Report Type: Spontaneous
  Country: IT (occurrence: IT)
  Receive Date: 20150406
  Receipt Date: 20150406
  Transmission Date: 20150821
  Serious: Yes (Other)
  Sender: FDA-Public Use
  Company Number: IT-TEVA-551973ACC

PATIENT
  Age: 42 Year
  Sex: Female

DRUGS (2)
  1. OLANZAPINE TEVA - 2.5 MG COMPRESSE RIVESTITE CON FILM - TEVA PHARMA B. [Suspect]
     Active Substance: OLANZAPINE
     Indication: PSYCHOTIC DISORDER
     Dosage: 7.5 MILLIGRAM DAILY;
     Route: 048
     Dates: start: 20140501, end: 20150101
  2. ZOLOFT - 20 MG/ML SOLUZIONE ORALE [Concomitant]
     Indication: PRODUCT USED FOR UNKNOWN INDICATION

REACTIONS (6)
  - Product substitution issue [Unknown]
  - Obsessive-compulsive disorder [Unknown]
  - Dysphoria [Unknown]
  - Hypersomnia [Unknown]
  - Persecutory delusion [Unknown]
  - Weight increased [Unknown]

NARRATIVE: CASE EVENT DATE: 20150101
